FAERS Safety Report 5343646-9 (Version None)
Quarter: 2007Q2

REPORT INFORMATION
  Report Type: 
  Country: None (occurrence: None)
  Receive Date: 20070531
  Receipt Date: 20070521
  Transmission Date: 20071010
  Serious: Yes (Hospitalization)
  Sender: FDA-Public Use
  Company Number: GXBR2007US00663

PATIENT
  Age: 79 Year
  Sex: Male
  Weight: 68 kg

DRUGS (9)
  1. TERAZOSIN HCL [Suspect]
     Indication: HYPERTENSION
     Dosage: 1 MG, ONCE/SINGLE, ORAL
     Route: 048
     Dates: start: 20060901, end: 20060901
  2. PROSCAR [Concomitant]
  3. ALLOPURINOL [Concomitant]
  4. FELODIPINE [Concomitant]
  5. ARICEPT [Concomitant]
  6. ASPIRIN [Concomitant]
  7. MULTILVITAMINS (ASCORBIC ACID, ERGOCALCIFEROL, FOILC ACID, NICOTINAMID [Concomitant]
  8. VITAMIN D [Concomitant]
  9. FLOVENT (FLUTICASEONE PROPIONATE) [Concomitant]

REACTIONS (8)
  - ASTHENIA [None]
  - CARDIAC ARREST [None]
  - EMOTIONAL DISTRESS [None]
  - FATIGUE [None]
  - HYPOTENSION [None]
  - PULSE ABSENT [None]
  - RESPIRATORY ARREST [None]
  - SYNCOPE [None]
